FAERS Safety Report 7898408-5 (Version None)
Quarter: 2011Q4

REPORT INFORMATION
  Report Type: 
  Country: None (occurrence: None)
  Receive Date: 20111107
  Receipt Date: 20111104
  Transmission Date: 20120403
  Serious: Yes (Life-Threatening, Other)
  Sender: FDA-Public Use
  Company Number: FR-B.I. PHARMACEUTICALS,INC./RIDGEFIELD-2011-FF-00317FF

PATIENT
  Sex: Male

DRUGS (3)
  1. PRADAXA [Suspect]
     Indication: KNEE ARTHROPLASTY
  2. PRADAXA [Suspect]
     Indication: THROMBOSIS PROPHYLAXIS
     Route: 048
  3. ANTI-INFLAMMATORY MEDICATIONS [Concomitant]

REACTIONS (5)
  - RESPIRATORY DISTRESS [None]
  - MULTI-ORGAN FAILURE [None]
  - HAEMATURIA [None]
  - EPISTAXIS [None]
  - RENAL FAILURE ACUTE [None]
